FAERS Safety Report 11936834 (Version 1)
Quarter: 2016Q1

REPORT INFORMATION
  Report Type: Spontaneous
  Country: US (occurrence: US)
  Receive Date: 20160121
  Receipt Date: 20160121
  Transmission Date: 20160526
  Serious: Yes (Other)
  Sender: FDA-Public Use
  Company Number: US-CELGENE-USA-2016012483

PATIENT
  Sex: Female

DRUGS (1)
  1. THALOMID [Suspect]
     Active Substance: THALIDOMIDE
     Indication: MARROW HYPERPLASIA
     Dosage: 50 MILLIGRAM
     Route: 048
     Dates: start: 20151016

REACTIONS (1)
  - Drug intolerance [Not Recovered/Not Resolved]
